FAERS Safety Report 6018850-7 (Version None)
Quarter: 2008Q4

REPORT INFORMATION
  Report Type: 
  Country: None (occurrence: None)
  Receive Date: 20081224
  Receipt Date: 20081219
  Transmission Date: 20090506
  Serious: Yes (Other)
  Sender: FDA-Public Use
  Company Number: DE-RANBAXY-2008RR-20129

PATIENT
  Age: 32 Year
  Sex: Male

DRUGS (4)
  1. CLARITHROMYCIN [Suspect]
     Dosage: 500 MG, UNK
  2. QUETIAPINE [Suspect]
     Dosage: 50 MG, UNK
  3. QUETIAPINE [Suspect]
     Dosage: 700 MG, UNK
  4. SULTAMICIN [Concomitant]

REACTIONS (3)
  - DEPRESSED LEVEL OF CONSCIOUSNESS [None]
  - DRUG INTERACTION [None]
  - RESPIRATORY FAILURE [None]
